FAERS Safety Report 16208009 (Version 2)
Quarter: 2019Q2

REPORT INFORMATION
  Report Type: Report from Study
  Country: CH (occurrence: CH)
  Receive Date: 20190417
  Receipt Date: 20190430
  Transmission Date: 20190711
  Serious: Yes (Other)
  Sender: FDA-Public Use
  Company Number: CH-ROCHE-2302575

PATIENT
  Age: 69 Year

DRUGS (2)
  1. BLINDED IBRUTINIB [Suspect]
     Active Substance: IBRUTINIB
     Indication: B-CELL LYMPHOMA
     Dosage: LAST DOSE OF IBRUTINIB PRIOR TO THE SAE ON 14/FEB/2018.
     Route: 065
     Dates: start: 20170815
  2. RITUXIMAB. [Suspect]
     Active Substance: RITUXIMAB
     Indication: B-CELL LYMPHOMA
     Dosage: LAST DOSE OF RITUXIMAB PRIOR TO THE SAE ON 08/JAN/2018.
     Route: 041
     Dates: start: 20170228

REACTIONS (1)
  - Diffuse large B-cell lymphoma [Recovered/Resolved with Sequelae]

NARRATIVE: CASE EVENT DATE: 20180319
